FAERS Safety Report 21634432 (Version 1)
Quarter: 2022Q4

REPORT INFORMATION
  Report Type: Spontaneous
  Country: CN (occurrence: CN)
  Receive Date: 20221123
  Receipt Date: 20221123
  Transmission Date: 20230113
  Serious: Yes (Other)
  Sender: FDA-Public Use
  Company Number: CN-PFIZER INC-PV202200107126

PATIENT
  Age: 14 Month
  Sex: Female
  Weight: 12.5 kg

DRUGS (1)
  1. METHYLPREDNISOLONE SODIUM SUCCINATE [Suspect]
     Active Substance: METHYLPREDNISOLONE SODIUM SUCCINATE
     Indication: Dysphonia
     Dosage: 12.5 MG, 1X/DAY
     Route: 041
     Dates: start: 20221116, end: 20221116

REACTIONS (3)
  - Flushing [Recovering/Resolving]
  - Tachypnoea [Recovering/Resolving]
  - Off label use [Unknown]

NARRATIVE: CASE EVENT DATE: 20221116
